FAERS Safety Report 7033267-4 (Version None)
Quarter: 2010Q4

REPORT INFORMATION
  Report Type: 
  Country: None (occurrence: None)
  Receive Date: 20101005
  Receipt Date: 20100924
  Transmission Date: 20110411
  Serious: Yes (Other)
  Sender: FDA-Public Use
  Company Number: 2010P1001131

PATIENT
  Age: 13 Year
  Sex: Male
  Weight: 78.9259 kg

DRUGS (8)
  1. SOLODYN [Suspect]
     Indication: ACNE
     Dosage: 90 MG; QD; PO
     Route: 048
     Dates: start: 20090324, end: 20100701
  2. PRILOSEC (OMEPRAZOLE DELAYED RELEASE) [Concomitant]
  3. FLONASE [Concomitant]
  4. ZYRTEC [Concomitant]
  5. RETIN-A (TRETINOIN) [Concomitant]
  6. ACANYA (BENZOYL PEROXIDE AND CLINDAMYCIN) [Concomitant]
  7. PACNEX (BENZOYL PEROXIDE) [Concomitant]
  8. SINUS RINSE (UNSPECIFIED) [Concomitant]

REACTIONS (3)
  - EDUCATIONAL PROBLEM [None]
  - MIXED DEAFNESS [None]
  - SNORING [None]
